FAERS Safety Report 17293404 (Version 1)
Quarter: 2020Q1

REPORT INFORMATION
  Report Type: Spontaneous
  Country: US (occurrence: US)
  Receive Date: 20200121
  Receipt Date: 20200121
  Transmission Date: 20200409
  Serious: No
  Sender: FDA-Public Use
  Company Number: US-TEVA-2020-US-1170166

PATIENT
  Sex: Female

DRUGS (3)
  1. BUPRENORPHINE. [Suspect]
     Active Substance: BUPRENORPHINE
     Dosage: FORM STRENGTH: 15MCG/HOUR
  2. BUPRENORPHINE. [Suspect]
     Active Substance: BUPRENORPHINE
     Dosage: FORM STRENGTH: 10MCG/HOUR
  3. BUPRENORPHINE. [Suspect]
     Active Substance: BUPRENORPHINE
     Dosage: FORM STRENGTH: 05 MCG/HOUR

REACTIONS (2)
  - Product adhesion issue [Unknown]
  - Drug ineffective [Unknown]
